FAERS Safety Report 7236198-X (Version None)
Quarter: 2011Q1

REPORT INFORMATION
  Report Type: 
  Country: None (occurrence: None)
  Receive Date: 20110111
  Receipt Date: 20101230
  Transmission Date: 20110831
  Serious: Yes (Hospitalization, Other)
  Sender: FDA-Public Use
  Company Number: CIP10001985

PATIENT
  Age: 70 Year
  Sex: Female
  Weight: 44.5 kg

DRUGS (17)
  1. ACTONEL [Suspect]
     Dosage: 30 MG, DAILY, ORAL
     Route: 048
     Dates: end: 20080101
  2. WELLBUTRIN [Concomitant]
  3. MULTIVITAMINE (VITAMINS NOS) [Concomitant]
  4. LIPITOR [Concomitant]
  5. VITAMIN D [Concomitant]
  6. OMEGA 3 FISH OIL (FISH OIL) [Concomitant]
  7. LEXAPRO [Concomitant]
  8. FEROCON (FERROUS FUMARATE, FOLIC ACID, VITAMIN-B-KOMPLEX STANDARD) [Concomitant]
  9. ACTONEL [Suspect]
     Dosage: 35 MG ONCE WEEKLY, ORAL
     Route: 048
     Dates: start: 20031023
  10. CALCIUM (CALCIUM) [Concomitant]
  11. ASCORBIC ACID [Concomitant]
  12. COUMADIN [Concomitant]
  13. CELEBREX [Concomitant]
  14. XANAX [Concomitant]
  15. FOSAMAX [Suspect]
     Indication: OSTEOPOROSIS
     Dosage: 70 MG ONCE WEEKLY, ORAL
     Route: 048
     Dates: start: 19980101, end: 20031023
  16. FOSAMAX [Suspect]
     Indication: OSTEOPOROSIS PROPHYLAXIS
     Dosage: 70 MG ONCE WEEKLY, ORAL
     Route: 048
     Dates: start: 19980101, end: 20031023
  17. SINGULAIR [Concomitant]

REACTIONS (29)
  - ARTHRALGIA [None]
  - PAIN IN EXTREMITY [None]
  - HAEMATOCRIT DECREASED [None]
  - CONTUSION [None]
  - EMPHYSEMA [None]
  - DEHYDRATION [None]
  - VOMITING [None]
  - ECCHYMOSIS [None]
  - BALANCE DISORDER [None]
  - DRUG INTOLERANCE [None]
  - MUSCULAR WEAKNESS [None]
  - JOINT INJURY [None]
  - LOW TURNOVER OSTEOPATHY [None]
  - FEMORAL NECK FRACTURE [None]
  - FALL [None]
  - MUSCLE INJURY [None]
  - GAIT DISTURBANCE [None]
  - ANAEMIA [None]
  - PATELLOFEMORAL PAIN SYNDROME [None]
  - DIZZINESS [None]
  - UPPER RESPIRATORY TRACT INFECTION [None]
  - WEIGHT BEARING DIFFICULTY [None]
  - STRESS FRACTURE [None]
  - HAEMOGLOBIN DECREASED [None]
  - BRONCHITIS CHRONIC [None]
  - MULTIPLE FRACTURES [None]
  - TRAUMATIC FRACTURE [None]
  - BONE DISORDER [None]
  - POST PROCEDURAL COMPLICATION [None]
